FAERS Safety Report 16567866 (Version 1)
Quarter: 2019Q3

REPORT INFORMATION
  Report Type: Report from Study
  Country: IT (occurrence: IT)
  Receive Date: 20190712
  Receipt Date: 20190712
  Transmission Date: 20191004
  Serious: Yes (Other)
  Sender: FDA-Public Use
  Company Number: IT-MYLANLABS-2019M1064567

PATIENT
  Age: 76 Year
  Sex: Male
  Weight: 74 kg

DRUGS (8)
  1. ALOXI [Concomitant]
     Active Substance: PALONOSETRON HYDROCHLORIDE
     Indication: PRODUCT USED FOR UNKNOWN INDICATION
     Dosage: UNK
     Route: 065
  2. OXALIPLATIN. [Suspect]
     Active Substance: OXALIPLATIN
     Indication: COLORECTAL CANCER
     Dosage: 140 MILLIGRAM, BIWEEKLY
     Route: 042
     Dates: start: 20161219, end: 20161221
  3. OXALIPLATIN. [Suspect]
     Active Substance: OXALIPLATIN
     Indication: COLORECTAL CANCER METASTATIC
     Dosage: 81 MG/M2 (81 MG/M2, Q15)
     Route: 042
     Dates: start: 20161219, end: 20170607
  4. 5-FLUOROURACIL                     /00098801/ [Suspect]
     Active Substance: FLUOROURACIL
     Indication: COLORECTAL CANCER METASTATIC
     Dosage: 2000 MG/M2, (2000 MG/M2, Q15
     Route: 042
     Dates: start: 20161219, end: 20170607
  5. VECTIBIX [Suspect]
     Active Substance: PANITUMUMAB
     Indication: COLORECTAL CANCER METASTATIC
     Dosage: 440 MG, Q2WK
     Route: 042
  6. VECTIBIX [Suspect]
     Active Substance: PANITUMUMAB
     Dosage: 296 MILLIGRAM, BIWEEKLY
     Route: 042
     Dates: start: 20161219
  7. 5-FLUOROURACIL                     /00098801/ [Suspect]
     Active Substance: FLUOROURACIL
     Indication: COLORECTAL CANCER
     Dosage: 3700 MILLIGRAM/SQ. METER, BIWEEKLY
     Route: 042
     Dates: start: 20161219, end: 20161221
  8. LEUCOVORIN                         /00566701/ [Concomitant]
     Active Substance: LEUCOVORIN
     Indication: COLORECTAL CANCER
     Dosage: 340 MG, Q2WK
     Route: 042
     Dates: start: 20161219, end: 20161221

REACTIONS (15)
  - Constipation [Recovered/Resolved]
  - Dyspepsia [Recovered/Resolved]
  - Diarrhoea [Recovered/Resolved]
  - Neurotoxicity [Not Recovered/Not Resolved]
  - Pain [Recovered/Resolved]
  - Rash pustular [Not Recovered/Not Resolved]
  - Rash [Recovered/Resolved]
  - Aphthous ulcer [Recovered/Resolved]
  - Pollakiuria [Recovered/Resolved]
  - Pyrexia [Unknown]
  - Conjunctivitis [Recovered/Resolved]
  - Nausea [Recovered/Resolved]
  - Stomatitis [Recovered/Resolved]
  - Asthenia [Recovered/Resolved]
  - Haemorrhoids [Recovered/Resolved]

NARRATIVE: CASE EVENT DATE: 20161221
